FAERS Safety Report 4581852-1 (Version None)
Quarter: 2005Q1

REPORT INFORMATION
  Report Type: 
  Country: None (occurrence: None)
  Receive Date: 20050214
  Receipt Date: 20040322
  Transmission Date: 20050727
  Serious: No
  Sender: FDA-Public Use
  Company Number: US-GLAXOSMITHKLINE-A0503847A

PATIENT
  Age: 41 Year
  Sex: Male

DRUGS (7)
  1. LAMICTAL [Suspect]
     Indication: BIPOLAR DISORDER
     Dosage: 100MG THREE TIMES PER DAY
     Route: 048
     Dates: start: 20040101, end: 20040318
  2. NEURONTIN [Concomitant]
  3. ZESTRIL [Concomitant]
  4. ATENOLOL [Concomitant]
  5. GLUCOVANCE [Concomitant]
  6. INSULIN [Concomitant]
  7. ESKALITH [Concomitant]

REACTIONS (4)
  - DYSPNOEA [None]
  - FEELING HOT [None]
  - NASAL CONGESTION [None]
  - RASH [None]
